FAERS Safety Report 15411553 (Version 1)
Quarter: 2018Q4

REPORT INFORMATION
  Report Type: Spontaneous
  Country: CO (occurrence: CO)
  Receive Date: 20180921
  Receipt Date: 20180921
  Transmission Date: 20190204
  Serious: No
  Sender: FDA-Public Use
  Company Number: CO-RECKITT BENCKISER HEALTHCARE INT LIMITED-RB-83595-2018

PATIENT
  Sex: Male

DRUGS (9)
  1. ZITROMAX [Suspect]
     Active Substance: AZITHROMYCIN
     Indication: HAEMOPTYSIS
     Dosage: UNK
     Route: 065
  2. ZITROMAX [Suspect]
     Active Substance: AZITHROMYCIN
     Indication: PYREXIA
  3. MUCINEX [Suspect]
     Active Substance: GUAIFENESIN
     Indication: HAEMOPTYSIS
     Dosage: UNK
     Route: 065
  4. MUCINEX [Suspect]
     Active Substance: GUAIFENESIN
     Indication: ASTHENIA
  5. BETADUO [Suspect]
     Active Substance: BETAMETHASONE DIPROPIONATE\BETAMETHASONE SODIUM PHOSPHATE
     Indication: PYREXIA
  6. BETADUO [Suspect]
     Active Substance: BETAMETHASONE DIPROPIONATE\BETAMETHASONE SODIUM PHOSPHATE
     Indication: HAEMOPTYSIS
     Dosage: UNK
     Route: 065
  7. BETADUO [Suspect]
     Active Substance: BETAMETHASONE DIPROPIONATE\BETAMETHASONE SODIUM PHOSPHATE
     Indication: ASTHENIA
  8. MUCINEX [Suspect]
     Active Substance: GUAIFENESIN
     Indication: PYREXIA
  9. ZITROMAX [Suspect]
     Active Substance: AZITHROMYCIN
     Indication: ASTHENIA

REACTIONS (1)
  - Drug ineffective [Not Recovered/Not Resolved]
